FAERS Safety Report 18236078 (Version 1)
Quarter: 2020Q3

REPORT INFORMATION
  Report Type: Report from Study
  Country: None (occurrence: CA)
  Receive Date: 20200906
  Receipt Date: 20200906
  Transmission Date: 20201103
  Serious: Yes (Other)
  Sender: FDA-Public Use
  Company Number: CA-HLS-202001334

PATIENT
  Sex: Female

DRUGS (9)
  1. SENNOSIDES. [Concomitant]
     Active Substance: SENNOSIDES
     Dosage: NOT SPECIFIED
     Route: 065
  2. ESCITALOPRAM [Concomitant]
     Active Substance: ESCITALOPRAM OXALATE
     Route: 065
  3. RIVASTIGMINE. [Concomitant]
     Active Substance: RIVASTIGMINE
     Route: 065
  4. CLOZARIL [Suspect]
     Active Substance: CLOZAPINE
     Indication: PRODUCT USED FOR UNKNOWN INDICATION
     Route: 048
  5. CALCIUM [Concomitant]
     Active Substance: CALCIUM
     Dosage: NOT SPECIFIED
     Route: 065
  6. ACETAMINOPHEN. [Concomitant]
     Active Substance: ACETAMINOPHEN
     Dosage: NOT SPECIFIED
     Route: 065
  7. BISACODYL. [Concomitant]
     Active Substance: BISACODYL
     Dosage: NOT SPECIFIED
     Route: 065
  8. SODIUM PHOSPHATE [Concomitant]
     Active Substance: SODIUM PHOSPHATE
     Dosage: SOLUTION
     Route: 065
  9. LACTULOSE SYRUP [Concomitant]
     Active Substance: LACTULOSE
     Dosage: NOT SPECIFIED
     Route: 065

REACTIONS (8)
  - Transient ischaemic attack [Unknown]
  - Arrhythmia [Unknown]
  - Depression [Unknown]
  - Osteoarthritis [Unknown]
  - Urinary incontinence [Unknown]
  - Vascular dementia [Unknown]
  - Hypertension [Unknown]
  - Parkinson^s disease [Unknown]
